FAERS Safety Report 4806835-5 (Version None)
Quarter: 2005Q4

REPORT INFORMATION
  Report Type: 
  Country: None (occurrence: None)
  Receive Date: 20051024
  Receipt Date: 20050930
  Transmission Date: 20060501
  Serious: Yes (Life-Threatening, Hospitalization)
  Sender: FDA-Public Use
  Company Number: US-BOEHRINGER INGELHEIM PHARMACEUTICALS, INC.-2005-BP-17410BP

PATIENT
  Sex: Female
  Weight: 74.84 kg

DRUGS (11)
  1. MOBIC [Suspect]
     Indication: RHEUMATOID ARTHRITIS
     Route: 048
     Dates: start: 20041025, end: 20050922
  2. MOBIC [Suspect]
     Indication: LUMBAR SPINAL STENOSIS
  3. NEXIUM [Concomitant]
     Route: 048
     Dates: start: 20020101
  4. LOPRESSOR [Concomitant]
     Dates: start: 19990101
  5. ASPIRIN [Concomitant]
     Dates: start: 19990101
  6. EVISTA [Concomitant]
     Dates: start: 19990101
  7. LIPITOR [Concomitant]
     Dates: start: 19990101
  8. MICARDIS [Concomitant]
     Dates: start: 20030623
  9. CYMBALTA [Concomitant]
  10. MIACALCIN [Concomitant]
     Dates: start: 20000101
  11. SERZONE [Concomitant]
     Dates: start: 20000101

REACTIONS (12)
  - ARTERIAL HAEMORRHAGE [None]
  - BUNDLE BRANCH BLOCK RIGHT [None]
  - DIARRHOEA [None]
  - DIZZINESS [None]
  - DYSPEPSIA [None]
  - FAECES DISCOLOURED [None]
  - GASTROINTESTINAL ULCER [None]
  - GASTROINTESTINAL ULCER HAEMORRHAGE [None]
  - HAEMATEMESIS [None]
  - HAEMATOCRIT DECREASED [None]
  - HAEMOGLOBIN DECREASED [None]
  - HIATUS HERNIA [None]
